FAERS Safety Report 5051065-8 (Version None)
Quarter: 2006Q3

REPORT INFORMATION
  Report Type: 
  Country: None (occurrence: None)
  Receive Date: 20060714
  Receipt Date: 20060704
  Transmission Date: 20061208
  Serious: Yes (Other)
  Sender: FDA-Public Use
  Company Number: PHBS2006DK10162

PATIENT
  Age: 18 Year
  Sex: Male

DRUGS (1)
  1. TEGRETOL [Suspect]
     Route: 064

REACTIONS (3)
  - DRUG EXPOSURE DURING PREGNANCY [None]
  - SPERM COUNT DECREASED [None]
  - TESTIS CANCER [None]
